FAERS Safety Report 14224088 (Version 1)
Quarter: 2017Q4

REPORT INFORMATION
  Report Type: Spontaneous
  Country: US (occurrence: US)
  Receive Date: 20171125
  Receipt Date: 20171125
  Transmission Date: 20180321
  Serious: Yes (Other)
  Sender: FDA-Public Use
  Company Number: None

PATIENT
  Sex: Female
  Weight: 81 kg

DRUGS (5)
  1. ESTER-C [Concomitant]
     Active Substance: CALCIUM\VITAMINS
  2. SPIRIVA RESPIMAT [Suspect]
     Active Substance: TIOTROPIUM BROMIDE
     Indication: ASTHMA
     Dosage: ?          OTHER STRENGTH:MCG/ACTUATION;QUANTITY:1 SPRAY(S);?
     Route: 055
     Dates: start: 20171103, end: 20171123
  3. ALBUTERAL [Concomitant]
     Active Substance: ALBUTEROL
  4. COMBIVENT [Concomitant]
     Active Substance: ALBUTEROL SULFATE\IPRATROPIUM BROMIDE
  5. ALLEGRA [Concomitant]
     Active Substance: FEXOFENADINE HYDROCHLORIDE

REACTIONS (9)
  - Dyspnoea [None]
  - Upper respiratory tract infection [None]
  - Gastrointestinal disorder [None]
  - Rhinorrhoea [None]
  - Rash pruritic [None]
  - Dizziness [None]
  - Hypersensitivity [None]
  - Muscle spasms [None]
  - Therapy cessation [None]

NARRATIVE: CASE EVENT DATE: 20171109
